FAERS Safety Report 7560875-4 (Version None)
Quarter: 2011Q2

REPORT INFORMATION
  Report Type: 
  Country: None (occurrence: None)
  Receive Date: 20110621
  Receipt Date: 20110607
  Transmission Date: 20111010
  Serious: Yes (Hospitalization)
  Sender: FDA-Public Use
  Company Number: US-ROCHE-784054

PATIENT
  Sex: Female

DRUGS (3)
  1. CARBOPLATIN [Suspect]
     Indication: ENDOMETRIAL CANCER
     Dosage: AUC = 6 IV OVER 30 MINUTES ON DAY 1 X 6 CYCLES
     Route: 042
     Dates: start: 20101109
  2. PACLITAXEL [Suspect]
     Indication: ENDOMETRIAL CANCER
     Dosage: IV OVER 3 HRS ON DAY 1 X 6 CYCLES
     Route: 042
     Dates: start: 20101109
  3. BEVACIZUMAB [Suspect]
     Indication: ENDOMETRIAL CANCER
     Dosage: 15 MG/KG OVER 30-90 MINUTES ON DAY 1 (STARTING WITH CYCLE 2).
     Route: 042
     Dates: start: 20101109

REACTIONS (6)
  - COUGH [None]
  - HEADACHE [None]
  - PAIN [None]
  - SYNCOPE [None]
  - HYPOTHERMIA [None]
  - DEHYDRATION [None]
